FAERS Safety Report 4658661-8 (Version None)
Quarter: 2005Q2

REPORT INFORMATION
  Report Type: 
  Country: None (occurrence: None)
  Receive Date: 20050509
  Receipt Date: 20050509
  Transmission Date: 20051028
  Serious: No
  Sender: FDA-Public Use
  Company Number: None

PATIENT
  Sex: Female
  Weight: 75.7507 kg

DRUGS (2)
  1. AVONEX [Suspect]
     Dosage: SHOT WEEKLY
  2. TYSABRI [Suspect]
     Indication: MULTIPLE SCLEROSIS
     Dosage: INFUSION MONTH

REACTIONS (1)
  - JOINT DESTRUCTION [None]
